FAERS Safety Report 20584768 (Version 1)
Quarter: 2022Q1

REPORT INFORMATION
  Report Type: Report from Study
  Country: EG (occurrence: EG)
  Receive Date: 20220311
  Receipt Date: 20220311
  Transmission Date: 20220423
  Serious: Yes (Other)
  Sender: FDA-Public Use
  Company Number: EG-NOVARTISPH-NVSC2022EG056916

PATIENT
  Age: 38 Year
  Sex: Female

DRUGS (3)
  1. GILENYA [Suspect]
     Active Substance: FINGOLIMOD HYDROCHLORIDE
     Indication: Multiple sclerosis
     Dosage: 0.5 MG, QD
     Route: 048
     Dates: start: 20211101
  2. OSSOFORTIN [Concomitant]
     Indication: Vitamin supplementation
     Dosage: 10000 EVERY OTHER DAY
     Route: 065
     Dates: start: 2019
  3. OSSOFORTIN [Concomitant]
     Dosage: 5000 ONCE DAILY

REACTIONS (2)
  - Intervertebral disc protrusion [Not Recovered/Not Resolved]
  - Multiple sclerosis relapse [Recovered/Resolved]

NARRATIVE: CASE EVENT DATE: 20211201
